FAERS Safety Report 5953990-X (Version None)
Quarter: 2008Q4

REPORT INFORMATION
  Report Type: 
  Country: None (occurrence: None)
  Receive Date: 20081114
  Receipt Date: 20081106
  Transmission Date: 20090506
  Serious: Yes (Hospitalization, Other)
  Sender: FDA-Public Use
  Company Number: CA-ABBOTT-08P-028-0486312-00

PATIENT
  Sex: Female
  Weight: 45.4 kg

DRUGS (3)
  1. HUMIRA [Suspect]
     Indication: RHEUMATOID ARTHRITIS
     Route: 058
     Dates: start: 20080603
  2. RANITIDINE [Concomitant]
     Indication: DRUG USE FOR UNKNOWN INDICATION
  3. ACETAMINOPHEN [Concomitant]
     Indication: DRUG USE FOR UNKNOWN INDICATION

REACTIONS (9)
  - BILIARY TRACT DISORDER [None]
  - BLOOD DISORDER [None]
  - CHILLS [None]
  - CHOLURIA [None]
  - JOINT STIFFNESS [None]
  - PAIN [None]
  - RHEUMATOID ARTHRITIS [None]
  - SEPSIS [None]
  - WEIGHT DECREASED [None]
